FAERS Safety Report 8061551-4 (Version None)
Quarter: 2012Q1

REPORT INFORMATION
  Report Type: 
  Country: None (occurrence: None)
  Receive Date: 20120120
  Receipt Date: 20120117
  Transmission Date: 20120608
  Serious: Yes (Hospitalization)
  Sender: FDA-Public Use
  Company Number: PHHY2012KR004154

PATIENT

DRUGS (2)
  1. CEFTRIAXONE [Concomitant]
     Indication: PNEUMONIA
     Dosage: 1000 MG, UNK
     Route: 042
  2. METRONIDAZOLE [Suspect]
     Indication: PNEUMONIA
     Dosage: 1500 MG, UNK

REACTIONS (5)
  - PARAESTHESIA [None]
  - CONFUSIONAL STATE [None]
  - DYSARTHRIA [None]
  - TOXIC ENCEPHALOPATHY [None]
  - DISORIENTATION [None]
